FAERS Safety Report 25700535 (Version 4)
Quarter: 2025Q4

REPORT INFORMATION
  Report Type: Report from Study
  Country: US (occurrence: US)
  Receive Date: 20250819
  Receipt Date: 20251016
  Transmission Date: 20260117
  Serious: Yes (Disabling)
  Sender: MALLINCKRODT
  Company Number: US-MALLINCKRODT-MNK202504895

PATIENT
  Age: 52 Year
  Sex: Female

DRUGS (3)
  1. CORTICOTROPIN [Suspect]
     Active Substance: CORTICOTROPIN
     Indication: Multiple sclerosis
     Dosage: 80 UNITS
     Route: 058
     Dates: start: 20250912
  2. TYSABRI [Concomitant]
     Active Substance: NATALIZUMAB
     Dosage: UNKNOWN
  3. VITAMIN B12 [Concomitant]
     Active Substance: CYANOCOBALAMIN
     Dosage: UNKNOWN

REACTIONS (5)
  - Multiple sclerosis relapse [Not Recovered/Not Resolved]
  - Osteoarthritis [Unknown]
  - Mania [Unknown]
  - Visual impairment [Recovering/Resolving]
  - Depression [Unknown]

NARRATIVE: CASE EVENT DATE: 20250101
